FAERS Safety Report 10914801 (Version 4)
Quarter: 2015Q3

REPORT INFORMATION
  Report Type: Report from Study
  Country: JP (occurrence: JP)
  Receive Date: 20150313
  Receipt Date: 20150826
  Transmission Date: 20151125
  Serious: Yes (Death, Hospitalization, Other)
  Sender: FDA-Public Use
  Company Number: JP-OTSUKA-JP-2015-11356

PATIENT

DRUGS (24)
  1. ALDACTONE A [Concomitant]
     Active Substance: SPIRONOLACTONE
     Indication: FLUID RETENTION
     Dosage: 50 MG/DAY
     Route: 048
     Dates: end: 20150628
  2. LOXONIN [Concomitant]
     Active Substance: LOXOPROFEN SODIUM
     Indication: PRODUCT USED FOR UNKNOWN INDICATION
     Dosage: 100 MG/DAY
     Route: 062
     Dates: end: 20150302
  3. LIVACT [Concomitant]
     Active Substance: AMINO ACIDS
     Indication: PROPHYLAXIS
     Dosage: 4.15 G/DAY
     Route: 048
     Dates: end: 20150630
  4. TOLVAPTAN [Suspect]
     Active Substance: TOLVAPTAN
     Dosage: 7.5 MG, QD
     Route: 048
     Dates: start: 20150121, end: 20150528
  5. ALBUMIN [Concomitant]
     Active Substance: ALBUMIN (HUMAN)
     Dosage: 50 ML/DAY
     Route: 042
     Dates: start: 20150622, end: 20150625
  6. URSO S [Concomitant]
     Indication: PRODUCT USED FOR UNKNOWN INDICATION
     Dosage: 2700 MG/DAY
     Route: 048
     Dates: end: 20150630
  7. PARIET [Concomitant]
     Active Substance: RABEPRAZOLE SODIUM
     Indication: PROPHYLAXIS
     Dosage: 10 MG/DAY
     Route: 048
     Dates: end: 20150630
  8. LASIX M [Concomitant]
     Active Substance: FUROSEMIDE
     Indication: FLUID RETENTION
     Dosage: 60 MG/DAY
     Route: 048
     Dates: end: 20150203
  9. LASIX M [Concomitant]
     Active Substance: FUROSEMIDE
     Dosage: 80 MG/DAY
     Route: 048
     Dates: start: 20150307, end: 20150512
  10. LASIX M [Concomitant]
     Active Substance: FUROSEMIDE
     Dosage: 20 MG/DAY
     Route: 042
     Dates: start: 20150513, end: 20150601
  11. TOLVAPTAN [Suspect]
     Active Substance: TOLVAPTAN
     Indication: OEDEMA DUE TO HEPATIC DISEASE
     Dosage: 3.75 MG, QD
     Route: 048
     Dates: start: 20150115, end: 20150120
  12. ALBUMIN [Concomitant]
     Active Substance: ALBUMIN (HUMAN)
     Indication: OEDEMA DUE TO HEPATIC DISEASE
     Dosage: 100 ML/DAY
     Route: 042
     Dates: start: 20150303, end: 20150305
  13. ALBUMIN [Concomitant]
     Active Substance: ALBUMIN (HUMAN)
     Dosage: 50 ML/DAY
     Route: 042
     Dates: start: 20150523, end: 20150527
  14. BEZATOL [Concomitant]
     Active Substance: BEZAFIBRATE
     Indication: PRODUCT USED FOR UNKNOWN INDICATION
     Dosage: 400 MG/DAY
     Route: 048
     Dates: end: 20150630
  15. LASIX M [Concomitant]
     Active Substance: FUROSEMIDE
     Dosage: 40 MG/DAY
     Route: 048
     Dates: start: 20150204, end: 20150306
  16. LASIX M [Concomitant]
     Active Substance: FUROSEMIDE
     Dosage: 40 MG/DAY
     Route: 042
     Dates: start: 20150417, end: 20150420
  17. ALBUMIN [Concomitant]
     Active Substance: ALBUMIN (HUMAN)
     Indication: HYPOALBUMINAEMIA
     Dosage: 50 ML/DAY
     Route: 042
     Dates: start: 20150417, end: 20150419
  18. LASIX M [Concomitant]
     Active Substance: FUROSEMIDE
     Dosage: 40 MG/DAY
     Route: 048
     Dates: start: 20150602, end: 20150630
  19. RESTAMIN A [Concomitant]
     Indication: PRODUCT USED FOR UNKNOWN INDICATION
     Dosage: 2 G/DAY
     Route: 062
     Dates: end: 20150630
  20. LASIX M [Concomitant]
     Active Substance: FUROSEMIDE
     Indication: FLUID RETENTION
     Dosage: 40 MG/DAY
     Route: 042
     Dates: start: 20150303, end: 20150306
  21. ALBUMIN [Concomitant]
     Active Substance: ALBUMIN (HUMAN)
     Dosage: 50 ML/DAY
     Route: 042
     Dates: start: 20150516, end: 20150518
  22. MIYA-BM [Concomitant]
     Active Substance: CLOSTRIDIUM BUTYRICUM SPORES STRAIN M-55
     Indication: PRODUCT USED FOR UNKNOWN INDICATION
     Dosage: 3 G/DAY
     Route: 048
     Dates: end: 20150630
  23. LASIX M [Concomitant]
     Active Substance: FUROSEMIDE
     Dosage: 60 MG/DAY
     Route: 048
     Dates: start: 20150513, end: 20150601
  24. LASIX M [Concomitant]
     Active Substance: FUROSEMIDE
     Dosage: 20 MG/DAY
     Route: 042
     Dates: start: 20150621, end: 20150630

REACTIONS (7)
  - Peritonitis [Recovered/Resolved]
  - Ascites [Recovering/Resolving]
  - Ascites [Fatal]
  - Peritonitis [Fatal]
  - Ascites [Recovering/Resolving]
  - Peritonitis [Recovered/Resolved]
  - Hepatic cirrhosis [Fatal]

NARRATIVE: CASE EVENT DATE: 20150302
